FAERS Safety Report 15590003 (Version 3)
Quarter: 2020Q1

REPORT INFORMATION
  Report Type: Report from Study
  Country: JP (occurrence: JP)
  Receive Date: 20181106
  Receipt Date: 20200128
  Transmission Date: 20200409
  Serious: Yes (Death, Other)
  Sender: FDA-Public Use
  Company Number: JP-KYOWAKIRIN-2018AKK001508AA

PATIENT

DRUGS (40)
  1. TAZOPIPE [Concomitant]
     Active Substance: PIPERACILLIN SODIUM\TAZOBACTAM SODIUM
     Indication: FEBRILE NEUTROPENIA
     Dosage: UNK
     Route: 065
     Dates: end: 20170520
  2. NEOPAREN [Concomitant]
     Active Substance: AMINO ACIDS\DEXTROSE\ELECTROLYTES NOS\VITAMINS
     Indication: NUTRITIONAL SUPPLEMENTATION
     Dosage: UNK
     Route: 065
     Dates: start: 20170522, end: 20170524
  3. MEROPENEM. [Concomitant]
     Active Substance: MEROPENEM
     Dosage: UNK
     Route: 065
     Dates: start: 20170704, end: 20170728
  4. FAMOTIDINE. [Concomitant]
     Active Substance: FAMOTIDINE
     Indication: PROPHYLAXIS
     Dosage: UNK
     Route: 048
  5. URSODEOXYCHOLIC ACID [Concomitant]
     Active Substance: URSODIOL
     Dosage: UNK
     Route: 048
  6. DENOSINE [GANCICLOVIR SODIUM] [Concomitant]
     Indication: CYTOMEGALOVIRUS VIRAEMIA
     Dosage: UNK
     Route: 042
     Dates: start: 20170807, end: 20170815
  7. VANCOMYCIN [VANCOMYCIN HYDROCHLORIDE] [Concomitant]
     Active Substance: VANCOMYCIN HYDROCHLORIDE
     Indication: FEBRILE NEUTROPENIA
     Dosage: UNK
     Route: 065
     Dates: start: 20170714, end: 20170815
  8. TAZOPIPE [Concomitant]
     Active Substance: PIPERACILLIN SODIUM\TAZOBACTAM SODIUM
     Dosage: UNK
     Route: 065
     Dates: start: 20170629, end: 20170704
  9. FILGRASTIM [Concomitant]
     Active Substance: FILGRASTIM
     Dosage: UNK
     Route: 065
     Dates: start: 20170629, end: 20170814
  10. MAGNESIUM OXIDE. [Concomitant]
     Active Substance: MAGNESIUM OXIDE
     Dosage: UNK
     Route: 048
     Dates: end: 20170529
  11. GRAN SYRINGE 75 [Concomitant]
     Dosage: UNK
     Route: 065
     Dates: start: 20170520, end: 20170524
  12. FILGRASTIM [Concomitant]
     Active Substance: FILGRASTIM
     Dosage: UNK
     Route: 065
     Dates: start: 20170608, end: 20170611
  13. CELECOX [Concomitant]
     Active Substance: CELECOXIB
     Indication: PROPHYLAXIS
     Dosage: UNK
     Route: 048
     Dates: start: 20170601, end: 20170608
  14. AMIKACIN SULFATE. [Concomitant]
     Active Substance: AMIKACIN SULFATE
     Indication: FEBRILE NEUTROPENIA
     Dosage: UNK
     Route: 065
     Dates: start: 20170807, end: 20170814
  15. MOGAMULIZUMAB [Suspect]
     Active Substance: MOGAMULIZUMAB
     Indication: ADULT T-CELL LYMPHOMA/LEUKAEMIA
     Dosage: 1 MG/KG, 1X/2 WEEKS
     Route: 041
     Dates: start: 20170529, end: 20170612
  16. ACETAMINOPHEN. [Concomitant]
     Active Substance: ACETAMINOPHEN
     Indication: PROPHYLAXIS
     Dosage: UNK, QD
     Route: 065
     Dates: start: 20170519, end: 20170519
  17. DEXCHLORPHENIRAMINE MALEATE. [Concomitant]
     Active Substance: DEXCHLORPHENIRAMINE MALEATE
     Indication: PROPHYLAXIS
     Dosage: UNK, QD
     Route: 065
     Dates: start: 20170519, end: 20170519
  18. ITRACONAZOLE. [Concomitant]
     Active Substance: ITRACONAZOLE
     Indication: INFECTION PROPHYLAXIS
     Dosage: UNK
     Route: 048
     Dates: start: 20170427, end: 20170807
  19. MINOCYCLINE HYDROCHLORIDE. [Concomitant]
     Active Substance: MINOCYCLINE HYDROCHLORIDE
     Dosage: UNK
     Route: 065
     Dates: start: 20170529, end: 20170616
  20. FILGRASTIM [Concomitant]
     Active Substance: FILGRASTIM
     Indication: FEBRILE NEUTROPENIA
     Dosage: UNK
     Route: 065
     Dates: start: 20170605, end: 20170605
  21. CYMBALTA [Concomitant]
     Active Substance: DULOXETINE HYDROCHLORIDE
     Dosage: UNK
     Route: 048
     Dates: start: 20170530
  22. BFLUID [Concomitant]
     Active Substance: AMINO ACIDS\DEXTROSE\ELECTROLYTES NOS\VITAMINS
     Dosage: UNK
     Route: 065
     Dates: start: 20170525, end: 20170525
  23. MEROPENEM. [Concomitant]
     Active Substance: MEROPENEM
     Indication: FEBRILE NEUTROPENIA
     Dosage: UNK
     Route: 065
     Dates: start: 20170520, end: 20170527
  24. BIOFERMIN R [Concomitant]
     Active Substance: DIETARY SUPPLEMENT\PROBIOTICS
     Indication: PROPHYLAXIS
     Dosage: UNK
     Route: 048
  25. SULFAMETHOXAZOLE AND TRIMETHOPRIM [Concomitant]
     Active Substance: SULFAMETHOXAZOLE\TRIMETHOPRIM
     Indication: INFECTION PROPHYLAXIS
     Dosage: UNK
     Route: 048
     Dates: start: 20170427, end: 20170814
  26. TAZOPIPE [Concomitant]
     Active Substance: PIPERACILLIN SODIUM\TAZOBACTAM SODIUM
     Dosage: UNK
     Route: 065
     Dates: start: 20170728, end: 20170804
  27. FUNGUARD [Concomitant]
     Active Substance: MICAFUNGIN SODIUM
     Dosage: UNK
     Route: 065
     Dates: start: 20170522, end: 20170527
  28. FEBURIC [Concomitant]
     Active Substance: FEBUXOSTAT
     Indication: PROPHYLAXIS
     Dosage: UNK
     Route: 048
     Dates: end: 20170531
  29. K-SUPPLY [Concomitant]
     Active Substance: POTASSIUM CHLORIDE
     Dosage: UNK
     Route: 048
     Dates: end: 20170529
  30. ZOLPIDEM [Concomitant]
     Active Substance: ZOLPIDEM TARTRATE
     Indication: INSOMNIA
     Dosage: UNK
     Route: 048
  31. AMBISOME [Concomitant]
     Active Substance: AMPHOTERICIN B
     Indication: FEBRILE NEUTROPENIA
     Dosage: UNK
     Route: 065
     Dates: start: 20170807, end: 20170814
  32. ENALAPRIL                          /00574902/ [Concomitant]
     Active Substance: ENALAPRIL
     Dosage: UNK
     Route: 048
     Dates: start: 20170519, end: 20170522
  33. MOGAMULIZUMAB [Suspect]
     Active Substance: MOGAMULIZUMAB
     Dosage: 1 MG/KG, QD
     Route: 041
     Dates: start: 20170519, end: 20170519
  34. ACETAMINOPHEN. [Concomitant]
     Active Substance: ACETAMINOPHEN
     Dosage: UNK, 1X/2 WEEKS
     Route: 065
     Dates: start: 20170529, end: 20170612
  35. DEXCHLORPHENIRAMINE MALEATE. [Concomitant]
     Active Substance: DEXCHLORPHENIRAMINE MALEATE
     Dosage: UNK, 1X/2 WEEKS
     Route: 065
     Dates: start: 20170529, end: 20170612
  36. HYDROCORTISONE. [Concomitant]
     Active Substance: HYDROCORTISONE
     Indication: PROPHYLAXIS
     Dosage: 100 MG, QD
     Route: 065
     Dates: start: 20170519, end: 20170519
  37. HYDROCORTISONE. [Concomitant]
     Active Substance: HYDROCORTISONE
     Dosage: 100 MG, 1X/2 WEEKS
     Route: 065
     Dates: start: 20170529, end: 20170612
  38. TAZOPIPE [Concomitant]
     Active Substance: PIPERACILLIN SODIUM\TAZOBACTAM SODIUM
     Dosage: UNK
     Route: 065
     Dates: start: 20170610, end: 20170617
  39. BFLUID [Concomitant]
     Active Substance: AMINO ACIDS\DEXTROSE\ELECTROLYTES NOS\VITAMINS
     Indication: NUTRITIONAL SUPPLEMENTATION
     Dosage: UNK
     Route: 065
     Dates: start: 20170519, end: 20170521
  40. DAIKENCHUTO [Concomitant]
     Active Substance: HERBALS
     Dosage: UNK
     Route: 048
     Dates: start: 20170522, end: 20170523

REACTIONS (5)
  - Tumour invasion [Recovering/Resolving]
  - Cytomegalovirus viraemia [Fatal]
  - Cardiac failure [Fatal]
  - Erythema [Recovering/Resolving]
  - Febrile neutropenia [Fatal]

NARRATIVE: CASE EVENT DATE: 20170629
